FAERS Safety Report 8848123 (Version 1)
Quarter: 2012Q4

REPORT INFORMATION
  Report Type: 
  Country: US (occurrence: US)
  Receive Date: 20121018
  Receipt Date: 20121018
  Transmission Date: 20130627
  Serious: Yes (Death)
  Sender: FDA-Public Use
  Company Number: US-ROCHE-1132241

PATIENT
  Sex: Male

DRUGS (3)
  1. XELODA [Suspect]
     Indication: METASTASES TO LIVER
     Route: 065
  2. XELODA [Suspect]
     Indication: COLON CANCER
  3. XELODA [Suspect]
     Indication: COLON CANCER

REACTIONS (2)
  - No therapeutic response [Unknown]
  - Death [Fatal]
